FAERS Safety Report 9315485 (Version 1)
Quarter: 2013Q2

REPORT INFORMATION
  Report Type: Spontaneous
  Country: CA (occurrence: CA)
  Receive Date: 20130529
  Receipt Date: 20130529
  Transmission Date: 20140414
  Serious: Yes (Death)
  Sender: FDA-Public Use
  Company Number: CA-009507513-1304CAN016156

PATIENT
  Age: 59 Year
  Sex: Female

DRUGS (1)
  1. TEMODAL [Suspect]
     Indication: GLIOBLASTOMA
     Dosage: 280 MG, QD
     Route: 048
     Dates: start: 201007, end: 20130519

REACTIONS (2)
  - Disease progression [Unknown]
  - Death [Fatal]
